FAERS Safety Report 19509719 (Version 1)
Quarter: 2021Q3

REPORT INFORMATION
  Report Type: Spontaneous
  Country: US (occurrence: US)
  Receive Date: 20210709
  Receipt Date: 20210709
  Transmission Date: 20211014
  Serious: Yes (Hospitalization)
  Sender: FDA-Public Use
  Company Number: US-B.I. PHARMACEUTICALS,INC./RIDGEFIELD-2021-BI-113916

PATIENT
  Age: 46 Year
  Sex: Male

DRUGS (3)
  1. LANTUS [Concomitant]
     Active Substance: INSULIN GLARGINE
     Indication: TYPE 2 DIABETES MELLITUS
     Dosage: 44 UNITS INJECTED ONCE DAILY
     Route: 065
     Dates: start: 202105
  2. JARDIANCE [Suspect]
     Active Substance: EMPAGLIFLOZIN
     Indication: TYPE 2 DIABETES MELLITUS
     Dosage: 1 TABLET DAILY
     Route: 065
     Dates: start: 202101, end: 202105
  3. HUMALOG [Concomitant]
     Active Substance: INSULIN LISPRO
     Indication: TYPE 2 DIABETES MELLITUS
     Dosage: 10 UNITS INJECTED 3 TIMES DAILY
     Dates: start: 202105

REACTIONS (1)
  - Coronary artery bypass [Recovering/Resolving]

NARRATIVE: CASE EVENT DATE: 202105
